FAERS Safety Report 12213117 (Version 1)
Quarter: 2016Q1

REPORT INFORMATION
  Report Type: Spontaneous
  Country: FR (occurrence: FR)
  Receive Date: 20160328
  Receipt Date: 20160328
  Transmission Date: 20160526
  Serious: Yes (Life-Threatening, Hospitalization, Disabling, Other)
  Sender: FDA-Public Use
  Company Number: FR-ALKEM-001545

PATIENT
  Age: 6 Decade
  Sex: Male

DRUGS (3)
  1. MYCOPHENOLIC ACID. [Suspect]
     Active Substance: MYCOPHENOLIC ACID
     Indication: HENOCH-SCHONLEIN PURPURA NEPHRITIS
  2. DEXAMETHASONE. [Suspect]
     Active Substance: DEXAMETHASONE
     Indication: DIABETIC RETINAL OEDEMA
     Route: 031
  3. POVIDONE IODINE 5% [Concomitant]
     Dosage: STRENGTH: 5 %

REACTIONS (2)
  - Necrotising fasciitis [Recovered/Resolved]
  - Blindness [Not Recovered/Not Resolved]
